FAERS Safety Report 12477173 (Version 1)
Quarter: 2016Q2

REPORT INFORMATION
  Report Type: Spontaneous
  Country: US (occurrence: JP)
  Receive Date: 20160617
  Receipt Date: 20160617
  Transmission Date: 20160815
  Serious: No
  Sender: FDA-Public Use
  Company Number: JP-FRI-1000085428

PATIENT
  Age: 37 Year
  Sex: Female

DRUGS (1)
  1. ASENAPINE [Suspect]
     Active Substance: ASENAPINE
     Indication: SCHIZOPHRENIA
     Dosage: 5 MG X 2
     Route: 060
     Dates: start: 20160513, end: 20160513

REACTIONS (4)
  - Headache [Unknown]
  - Irritability [Unknown]
  - Chest discomfort [Unknown]
  - Nausea [Unknown]

NARRATIVE: CASE EVENT DATE: 20160601
